FAERS Safety Report 7043466-3 (Version None)
Quarter: 2010Q4

REPORT INFORMATION
  Report Type: 
  Country: None (occurrence: None)
  Receive Date: 20101013
  Receipt Date: 20100405
  Transmission Date: 20110411
  Serious: No
  Sender: FDA-Public Use
  Company Number: US-BRISTOL-MYERS SQUIBB COMPANY-15049828

PATIENT
  Sex: Male

DRUGS (1)
  1. MEGACE [Suspect]
     Indication: WEIGHT INCREASED
     Route: 048

REACTIONS (1)
  - NIGHT SWEATS [None]
